FAERS Safety Report 12817915 (Version 2)
Quarter: 2016Q4

REPORT INFORMATION
  Report Type: Spontaneous
  Country: FR (occurrence: FR)
  Receive Date: 20161006
  Receipt Date: 20161108
  Transmission Date: 20170207
  Serious: Yes (Hospitalization, Other)
  Sender: FDA-Public Use
  Company Number: FR-AMGEN-FRASP2016136200

PATIENT
  Age: 81 Year
  Sex: Female

DRUGS (11)
  1. ZELITREX [Concomitant]
     Active Substance: VALACYCLOVIR HYDROCHLORIDE
     Dosage: 500 MG, BID, MORNING AND EVENING
  2. LYRICA [Concomitant]
     Active Substance: PREGABALIN
     Dosage: 50 MG, BID, MORNING AND EVENING
  3. OXYCONTIN [Concomitant]
     Active Substance: OXYCODONE HYDROCHLORIDE
     Dosage: 10 MG, BID, MORNING AND EVENING
  4. KYPROLIS [Suspect]
     Active Substance: CARFILZOMIB
     Indication: PLASMA CELL MYELOMA
     Dosage: 20/27 MG/M2, UNK
     Route: 065
     Dates: start: 201608
  5. PARACETAMOL [Concomitant]
     Active Substance: ACETAMINOPHEN
     Dosage: 1 G, AS NECESSARY
  6. FRAGMINE [Concomitant]
     Active Substance: DALTEPARIN SODIUM
     Dosage: 5000 IU, UNK
     Route: 058
  7. REVLIMID [Concomitant]
     Active Substance: LENALIDOMIDE
     Indication: PLASMA CELL MYELOMA
     Dosage: UNK
     Dates: start: 201608
  8. DEXAMETHASONE. [Concomitant]
     Active Substance: DEXAMETHASONE
     Indication: PLASMA CELL MYELOMA
     Dosage: UNK
     Dates: start: 201608
  9. INEXIUM [Concomitant]
     Active Substance: ESOMEPRAZOLE
     Dosage: 40 MG, QD, EVENINGS
  10. LEVOTHYROXINE. [Concomitant]
     Active Substance: LEVOTHYROXINE
     Dosage: 75 MUG, QOD
  11. LEVOTHYROXINE. [Concomitant]
     Active Substance: LEVOTHYROXINE
     Dosage: 100 MUG, QOD

REACTIONS (7)
  - Impaired healing [Unknown]
  - Bone marrow infiltration [Unknown]
  - Escherichia urinary tract infection [Unknown]
  - Pathological fracture [Unknown]
  - Anaemia [Unknown]
  - Bacterial sepsis [Unknown]
  - Drug resistance [Unknown]

NARRATIVE: CASE EVENT DATE: 2016
